FAERS Safety Report 14206608 (Version 2)
Quarter: 2017Q4

REPORT INFORMATION
  Report Type: Spontaneous
  Country: GB (occurrence: GB)
  Receive Date: 20171120
  Receipt Date: 20171130
  Transmission Date: 20180321
  Serious: Yes (Hospitalization)
  Sender: FDA-Public Use
  Company Number: GB-MYLANLABS-2017M1073742

PATIENT
  Age: 53 Year
  Sex: Male

DRUGS (2)
  1. CLOZARIL [Suspect]
     Active Substance: CLOZAPINE
     Indication: SCHIZOPHRENIA
     Dosage: 50 MG, BID
     Route: 048
     Dates: start: 20140721, end: 20171117
  2. CLOZARIL [Suspect]
     Active Substance: CLOZAPINE
     Dosage: 50 MG, BID
     Route: 048
     Dates: start: 20171120

REACTIONS (2)
  - No adverse event [Unknown]
  - Drug dose omission [Recovering/Resolving]

NARRATIVE: CASE EVENT DATE: 201711
